FAERS Safety Report 11998954 (Version 1)
Quarter: 2016Q1

REPORT INFORMATION
  Report Type: Spontaneous
  Country: US (occurrence: None)
  Receive Date: 20160203
  Receipt Date: 20160203
  Transmission Date: 20160526
  Serious: Yes (Hospitalization)
  Sender: FDA-Public Use
  Company Number: None

PATIENT
  Age: 22 Year
  Sex: Female
  Weight: 62.6 kg

DRUGS (1)
  1. BELIMUMAB [Suspect]
     Active Substance: BELIMUMAB
     Indication: SYSTEMIC LUPUS ERYTHEMATOSUS
     Dates: start: 20160115

REACTIONS (6)
  - Pulmonary oedema [None]
  - Leukocytosis [None]
  - Pneumonia [None]
  - Headache [None]
  - Lung infiltration [None]
  - Oropharyngeal pain [None]

NARRATIVE: CASE EVENT DATE: 20160117
